FAERS Safety Report 20405447 (Version 1)
Quarter: 2022Q1

REPORT INFORMATION
  Report Type: Spontaneous
  Country: ZA (occurrence: ZA)
  Receive Date: 20220131
  Receipt Date: 20220131
  Transmission Date: 20220423
  Serious: Yes (Other)
  Sender: FDA-Public Use
  Company Number: ZA-PFIZER INC-202200107046

PATIENT

DRUGS (2)
  1. VORICONAZOLE [Suspect]
     Active Substance: VORICONAZOLE
     Indication: Osteomyelitis fungal
     Dosage: UNK UNK, AS NEEDED
     Route: 048
     Dates: start: 202105
  2. CASPOFUNGIN [Concomitant]
     Active Substance: CASPOFUNGIN
     Indication: Osteomyelitis fungal
     Dosage: UNK, AS NEEDED
     Route: 048
     Dates: start: 202105

REACTIONS (2)
  - Osteonecrosis [Unknown]
  - Off label use [Unknown]

NARRATIVE: CASE EVENT DATE: 20210501
